FAERS Safety Report 9892105 (Version 2)
Quarter: 2014Q1

REPORT INFORMATION
  Report Type: Spontaneous
  Country: FR (occurrence: FR)
  Receive Date: 20140212
  Receipt Date: 20140221
  Transmission Date: 20141002
  Serious: Yes (Other)
  Sender: FDA-Public Use
  Company Number: FR-GLAXOSMITHKLINE-B0965960A

PATIENT
  Sex: Female

DRUGS (4)
  1. ADARTREL [Suspect]
     Indication: RESTLESS LEGS SYNDROME
     Dosage: .5MG PER DAY
     Route: 048
     Dates: start: 20120412
  2. EFFEXOR [Concomitant]
     Indication: DEPRESSION
     Dosage: 37.5MG EVERY 3 DAYS
     Route: 048
     Dates: start: 1998
  3. ANTIHYPERTENSIVE (UNSPECIFIED) [Concomitant]
     Indication: HYPERTENSION
     Route: 065
  4. FERROUS SULPHATE [Concomitant]
     Route: 065

REACTIONS (7)
  - Dependence [Recovering/Resolving]
  - Impulse-control disorder [Recovering/Resolving]
  - Pathological gambling [Recovering/Resolving]
  - Food craving [Recovering/Resolving]
  - Restless legs syndrome [Unknown]
  - Nausea [Unknown]
  - Somnolence [Unknown]
